FAERS Safety Report 4521247-X (Version None)
Quarter: 2004Q4

REPORT INFORMATION
  Report Type: 
  Country: None (occurrence: None)
  Receive Date: 20041203
  Receipt Date: 20041122
  Transmission Date: 20050328
  Serious: Yes (Hospitalization)
  Sender: FDA-Public Use
  Company Number: 2004CG02206

PATIENT
  Age: 59 Year
  Sex: Male

DRUGS (20)
  1. OMEPRAZOLE [Suspect]
     Dosage: 20 MG DAILY PO
     Route: 048
     Dates: start: 20040906, end: 20040924
  2. NILEVAR [Suspect]
     Indication: BONE MARROW DEPRESSION
     Dates: start: 19970226, end: 20040301
  3. NILEVAR [Suspect]
     Indication: BONE MARROW DEPRESSION
     Dosage: 1 DF DAILY PO
     Route: 048
     Dates: start: 20040301, end: 20040101
  4. CIFLOX [Suspect]
     Dates: start: 20040904, end: 20040907
  5. TIENAM /SCH/ [Suspect]
     Dates: start: 20040904, end: 20040907
  6. AMOXICILLIN [Suspect]
     Dosage: 2 G TID IV
     Route: 042
     Dates: start: 20040907, end: 20040914
  7. DIPRIVAN [Concomitant]
  8. BRICANYL [Concomitant]
  9. CORTISONE HEMISUCCINATE [Concomitant]
  10. VANCOMYCIN [Concomitant]
  11. TAZOCILLINE [Concomitant]
  12. ACTRAPID HUMAN [Concomitant]
  13. ATROVENT [Concomitant]
  14. MORPHINE [Concomitant]
  15. FORLAX [Concomitant]
  16. HEPARIN [Concomitant]
  17. ACUPAN [Concomitant]
  18. PHENOBARBITAL SRT [Concomitant]
  19. HYPNOVEL [Concomitant]
  20. FENTANYL [Concomitant]

REACTIONS (4)
  - HEPATITIS [None]
  - MULTI-ORGAN FAILURE [None]
  - PANCREATITIS ACUTE [None]
  - SEPTIC SHOCK [None]
